FAERS Safety Report 9667940 (Version 2)
Quarter: 2014Q2

REPORT INFORMATION
  Report Type: Spontaneous
  Country: US (occurrence: None)
  Receive Date: 20131101
  Receipt Date: 20140414
  Transmission Date: 20141212
  Serious: No
  Sender: FDA-Public Use
  Company Number: 2013-US-002415

PATIENT
  Age: 12 Year
  Sex: Male
  Weight: 69.8 kg

DRUGS (3)
  1. XYREM [Suspect]
     Indication: NARCOLEPSY
     Route: 048
     Dates: start: 20130930
  2. XYREM [Suspect]
     Indication: SOMNOLENCE
     Route: 048
     Dates: start: 20130930
  3. ADDERALL (AMFETAMINE ASPARTATE, AMFETAMINE SULFATE, DEXAMFETAMINE SACCHARATE, DEXAMFEDAMINE SULFATE) [Concomitant]

REACTIONS (4)
  - Autism [None]
  - Irritability [None]
  - Condition aggravated [None]
  - Off label use [None]
